FAERS Safety Report 22211515 (Version 1)
Quarter: 2023Q2

REPORT INFORMATION
  Report Type: Spontaneous
  Country: US (occurrence: None)
  Receive Date: 20230413
  Receipt Date: 20230413
  Transmission Date: 20230722
  Serious: Yes (Hospitalization)
  Sender: FDA-Public Use
  Company Number: None

PATIENT
  Age: 74 Year
  Sex: Female

DRUGS (14)
  1. LENVIMA [Suspect]
     Active Substance: LENVATINIB
     Indication: Renal cancer
     Dosage: FREQUENCY : DAILY;?
     Route: 048
     Dates: start: 20190101, end: 20230410
  2. EVEROLIMUS [Concomitant]
     Active Substance: EVEROLIMUS
  3. HYDROCORTISONE [Concomitant]
     Active Substance: HYDROCORTISONE
  4. LEVOTHYROXINE [Concomitant]
     Active Substance: LEVOTHYROXINE
  5. METOPROLOL [Concomitant]
     Active Substance: METOPROLOL
  6. HYDRALAZINE [Concomitant]
     Active Substance: HYDRALAZINE HYDROCHLORIDE
  7. FUROSEMIDE [Concomitant]
     Active Substance: FUROSEMIDE
  8. NIFEDIPINE [Concomitant]
     Active Substance: NIFEDIPINE
  9. OMEPRAZOLE [Concomitant]
     Active Substance: OMEPRAZOLE
  10. MIRTAZAPINE [Concomitant]
     Active Substance: MIRTAZAPINE
  11. DICLOFENAC [Concomitant]
     Active Substance: DICLOFENAC
  12. TEMAZEPAM [Concomitant]
     Active Substance: TEMAZEPAM
  13. Norcan nasal [Concomitant]
  14. azelastine-fluticasone nasal spray [Concomitant]

REACTIONS (6)
  - Conjunctival haemorrhage [None]
  - Blood pressure increased [None]
  - Nausea [None]
  - Vomiting [None]
  - Diarrhoea [None]
  - Therapy interrupted [None]

NARRATIVE: CASE EVENT DATE: 20230410
